FAERS Safety Report 8182699-X (Version None)
Quarter: 2012Q1

REPORT INFORMATION
  Report Type: 
  Country: None (occurrence: None)
  Receive Date: 20120301
  Receipt Date: 20120301
  Transmission Date: 20120608
  Serious: No
  Sender: FDA-Public Use
  Company Number: None

PATIENT
  Sex: Female
  Weight: 54.4316 kg

DRUGS (1)
  1. NORTRIPTYLINE HCL [Suspect]
     Indication: MIGRAINE PROPHYLAXIS

REACTIONS (6)
  - RESTLESSNESS [None]
  - INSOMNIA [None]
  - TACHYPHRENIA [None]
  - FEELING ABNORMAL [None]
  - DISTURBANCE IN ATTENTION [None]
  - MENTAL DISORDER [None]
